FAERS Safety Report 5854390-3 (Version None)
Quarter: 2008Q3

REPORT INFORMATION
  Report Type: 
  Country: None (occurrence: None)
  Receive Date: 20080822
  Receipt Date: 20080625
  Transmission Date: 20090109
  Serious: No
  Sender: FDA-Public Use
  Company Number: US-BOEHRINGER INGELHEIM GMBH, GERMANY-2008-BP-09853BP

PATIENT
  Age: 80 Year
  Sex: Female

DRUGS (7)
  1. CATAPRES-TTS-1 [Suspect]
     Indication: HYPERTENSION
     Route: 061
     Dates: start: 20080618
  2. NEXIUM [Concomitant]
     Indication: GASTROOESOPHAGEAL REFLUX DISEASE
  3. LASIX [Concomitant]
     Indication: CARDIAC DISORDER
  4. LIPITOR [Concomitant]
     Indication: BLOOD CHOLESTEROL INCREASED
  5. LOTREL [Concomitant]
     Indication: BLOOD PRESSURE
  6. LUNESTA [Concomitant]
     Indication: INSOMNIA
  7. CLONIDINE [Concomitant]
     Indication: BLOOD PRESSURE

REACTIONS (2)
  - APPLICATION SITE PRURITUS [None]
  - APPLICATION SITE VESICLES [None]
